FAERS Safety Report 5488990-X (Version None)
Quarter: 2007Q4

REPORT INFORMATION
  Report Type: 
  Country: None (occurrence: None)
  Receive Date: 20071016
  Receipt Date: 20071002
  Transmission Date: 20080405
  Serious: Yes (Hospitalization)
  Sender: FDA-Public Use
  Company Number: 2007-163261-NL

PATIENT
  Age: 67 Year
  Sex: Male

DRUGS (15)
  1. VECURONIUM BROMIDE [Suspect]
     Indication: ANAESTHESIA
     Dosage: 1 MG ONCE/8 MG ONCE/ 2 MG ONCE INTRAVENOUS (NOS)
     Route: 042
     Dates: start: 20070815, end: 20070815
  2. VECURONIUM BROMIDE [Suspect]
     Indication: MUSCLE RELAXANT THERAPY
     Dosage: 1 MG ONCE/8 MG ONCE/ 2 MG ONCE INTRAVENOUS (NOS)
     Route: 042
     Dates: start: 20070815, end: 20070815
  3. VECURONIUM BROMIDE [Suspect]
     Indication: ANAESTHESIA
     Dosage: 1 MG ONCE/8 MG ONCE/ 2 MG ONCE INTRAVENOUS (NOS)
     Route: 042
     Dates: start: 20070817, end: 20070817
  4. VECURONIUM BROMIDE [Suspect]
     Indication: MUSCLE RELAXANT THERAPY
     Dosage: 1 MG ONCE/8 MG ONCE/ 2 MG ONCE INTRAVENOUS (NOS)
     Route: 042
     Dates: start: 20070817, end: 20070817
  5. VECURONIUM BROMIDE [Suspect]
     Indication: ANAESTHESIA
     Dosage: 1 MG ONCE/8 MG ONCE/ 2 MG ONCE INTRAVENOUS (NOS)
     Route: 042
     Dates: start: 20070817, end: 20070817
  6. VECURONIUM BROMIDE [Suspect]
     Indication: MUSCLE RELAXANT THERAPY
     Dosage: 1 MG ONCE/8 MG ONCE/ 2 MG ONCE INTRAVENOUS (NOS)
     Route: 042
     Dates: start: 20070817, end: 20070817
  7. LACTATED RINGER'S [Concomitant]
  8. CEFAZOLIN SODIUM [Concomitant]
  9. PROPOFOL [Concomitant]
  10. BEZAFIBRATE [Concomitant]
  11. MECOBALAMIN [Concomitant]
  12. BETAHISTINE HYDROCHLORIDE [Concomitant]
  13. KALLIDINOGENASE [Concomitant]
  14. ISOSORBIDE DINITRATE [Concomitant]
  15. BROTIZOLAM [Concomitant]

REACTIONS (5)
  - ASPIRATION [None]
  - FEELING ABNORMAL [None]
  - ILL-DEFINED DISORDER [None]
  - MUSCLE CONTRACTIONS INVOLUNTARY [None]
  - VOMITING [None]
